FAERS Safety Report 8105511-3 (Version None)
Quarter: 2012Q1

REPORT INFORMATION
  Report Type: 
  Country: None (occurrence: None)
  Receive Date: 20120201
  Receipt Date: 20120131
  Transmission Date: 20120608
  Serious: Yes (Other)
  Sender: FDA-Public Use
  Company Number: US-PFIZER INC-2012010962

PATIENT
  Sex: Female
  Weight: 68.027 kg

DRUGS (5)
  1. WELLBUTRIN [Concomitant]
     Indication: DEPRESSION
     Dosage: 150 MG, UNK
  2. CHANTIX [Suspect]
     Dosage: 0.5 MG, DAILY
     Route: 048
     Dates: start: 20120101
  3. LEXAPRO [Concomitant]
     Indication: DEPRESSION
     Dosage: 20 MG, DAILY
  4. LEXAPRO [Concomitant]
     Indication: ANXIETY
  5. CHANTIX [Suspect]
     Indication: SMOKING CESSATION THERAPY
     Dosage: 0.5 MG, 1X/DAY
     Route: 048
     Dates: start: 20090101, end: 20090101

REACTIONS (8)
  - OROPHARYNGEAL PAIN [None]
  - ABNORMAL DREAMS [None]
  - IRRITABILITY [None]
  - BRUXISM [None]
  - PLEURITIC PAIN [None]
  - WEIGHT INCREASED [None]
  - AGITATION [None]
  - BODY HEIGHT DECREASED [None]
